FAERS Safety Report 15549909 (Version 1)
Quarter: 2018Q4

REPORT INFORMATION
  Report Type: Spontaneous
  Country: JP (occurrence: JP)
  Receive Date: 20181025
  Receipt Date: 20181025
  Transmission Date: 20190205
  Serious: Yes (Other)
  Sender: FDA-Public Use
  Company Number: JP-ROCHE-2187854

PATIENT
  Age: 25 Year
  Sex: Female
  Weight: 49.5 kg

DRUGS (13)
  1. LAC-B [Concomitant]
     Active Substance: BIFIDOBACTERIUM SPP.
     Indication: PROPHYLAXIS
     Route: 048
     Dates: start: 20180822
  2. RITUXAN [Suspect]
     Active Substance: RITUXIMAB
     Route: 041
     Dates: start: 20181007, end: 20181007
  3. LIXIANA [Concomitant]
     Active Substance: EDOXABAN TOSYLATE
     Indication: PROPHYLAXIS
     Route: 065
     Dates: start: 20180822
  4. MIDAZOLAM [Concomitant]
     Active Substance: MIDAZOLAM HYDROCHLORIDE
     Indication: ENCEPHALITIS AUTOIMMUNE
     Route: 041
     Dates: start: 20180825
  5. DOMPERIDONE [Concomitant]
     Active Substance: DOMPERIDONE
     Indication: PROPHYLAXIS
     Route: 065
     Dates: start: 20180822
  6. LANSOPRAZOLE. [Concomitant]
     Active Substance: LANSOPRAZOLE
     Indication: PROPHYLAXIS
     Route: 048
  7. RITUXAN [Suspect]
     Active Substance: RITUXIMAB
     Indication: ENCEPHALITIS AUTOIMMUNE
     Route: 041
     Dates: start: 20180912, end: 20180912
  8. POLARAMINE [Concomitant]
     Active Substance: DEXCHLORPHENIRAMINE MALEATE
     Indication: ENCEPHALITIS AUTOIMMUNE
     Route: 041
     Dates: start: 20180912
  9. SOLU-CORTEF [Concomitant]
     Active Substance: HYDROCORTISONE SODIUM SUCCINATE
     Indication: PROPHYLAXIS
     Route: 065
     Dates: start: 20180912
  10. CALONAL [Concomitant]
     Active Substance: ACETAMINOPHEN
     Indication: ENCEPHALITIS AUTOIMMUNE
     Route: 049
     Dates: start: 20180912
  11. RITUXAN [Suspect]
     Active Substance: RITUXIMAB
     Route: 041
     Dates: start: 20180919, end: 20180919
  12. RITUXAN [Suspect]
     Active Substance: RITUXIMAB
     Route: 041
     Dates: start: 20180926, end: 20180926
  13. PROPOFOL. [Concomitant]
     Active Substance: PROPOFOL
     Indication: ENCEPHALITIS AUTOIMMUNE
     Route: 041
     Dates: start: 20180904

REACTIONS (6)
  - Dyskinesia [Unknown]
  - Encephalitis [Unknown]
  - Off label use [Unknown]
  - Tachycardia [Recovered/Resolved]
  - Infusion related reaction [Unknown]
  - Pyrexia [Recovered/Resolved]

NARRATIVE: CASE EVENT DATE: 20180912
